FAERS Safety Report 12259835 (Version 1)
Quarter: 2016Q2

REPORT INFORMATION
  Report Type: Spontaneous
  Country: US (occurrence: US)
  Receive Date: 20160412
  Receipt Date: 20160412
  Transmission Date: 20160815
  Serious: No
  Sender: FDA-Public Use
  Company Number: US-SA-2015SA133313

PATIENT
  Sex: Female

DRUGS (1)
  1. ALLEGRA ALLERGY [Suspect]
     Active Substance: FEXOFENADINE HYDROCHLORIDE
     Indication: MULTIPLE ALLERGIES
     Dosage: START DATE: ABOUT 1 WEEK AGO
     Route: 048

REACTIONS (4)
  - Influenza like illness [Unknown]
  - Balance disorder [Unknown]
  - Dizziness [Unknown]
  - Musculoskeletal stiffness [Unknown]
